FAERS Safety Report 8936618 (Version 1)
Quarter: 2012Q4

REPORT INFORMATION
  Report Type: 
  Country: US (occurrence: US)
  Receive Date: 20121130
  Receipt Date: 20121130
  Transmission Date: 20130627
  Serious: No
  Sender: FDA-Public Use
  Company Number: US-ASTRAZENECA-2012SE87079

PATIENT
  Age: 67 Year
  Sex: Female
  Weight: 39 kg

DRUGS (3)
  1. ATENOLOL [Suspect]
     Indication: HYPERTENSION
     Route: 048
  2. CRESTOR [Suspect]
     Route: 048
  3. CLOPIDOGREL [Concomitant]

REACTIONS (5)
  - Pain [Unknown]
  - Hyperhidrosis [Unknown]
  - Amnesia [Unknown]
  - Musculoskeletal pain [Unknown]
  - Back pain [Unknown]
